FAERS Safety Report 23627002 (Version 1)
Quarter: 2024Q1

REPORT INFORMATION
  Report Type: Spontaneous
  Country: US (occurrence: None)
  Receive Date: 20240312
  Receipt Date: 20240312
  Transmission Date: 20240409
  Serious: No
  Sender: FDA-Public Use
  Company Number: None

PATIENT
  Age: 76 Year
  Sex: Female
  Weight: 78.02 kg

DRUGS (19)
  1. PROLIA [Suspect]
     Active Substance: DENOSUMAB
     Indication: Bone density abnormal
     Dosage: OTHER FREQUENCY : EVERY 6 MONTHS;?
     Dates: start: 20160418
  2. Pace Maker [Concomitant]
  3. TOPROL XL [Concomitant]
     Active Substance: METOPROLOL SUCCINATE
  4. ELIQUIS [Concomitant]
     Active Substance: APIXABAN
  5. Synthrniri [Concomitant]
  6. NEXIUM [Concomitant]
     Active Substance: ESOMEPRAZOLE MAGNESIUM
  7. HYDROCORTISONE ACETATE [Concomitant]
     Active Substance: HYDROCORTISONE ACETATE
  8. Fluticasone Propionate 50 [Concomitant]
  9. Albuterol ACT AER [Concomitant]
  10. VASCEPA [Concomitant]
     Active Substance: ICOSAPENT ETHYL
  11. VITAMIN D [Concomitant]
     Active Substance: VITAMIN D NOS
  12. PROBIOTICS NOS [Concomitant]
     Active Substance: PROBIOTICS NOS
  13. Caltrate + D3 [Concomitant]
  14. Advanced D3 Vitamin [Concomitant]
  15. ZINC [Concomitant]
     Active Substance: PYRITHIONE ZINC\ZINC\ZINC CHLORIDE
  16. MELATONIN [Concomitant]
     Active Substance: MELATONIN
  17. DIETARY SUPPLEMENT\HERBALS\MILK THISTLE [Concomitant]
     Active Substance: MILK THISTLE
  18. VITAMIN C [Concomitant]
     Active Substance: ASCORBIC ACID
  19. Multigenics without Iron [Concomitant]

REACTIONS (8)
  - Disorientation [None]
  - Confusional state [None]
  - Diarrhoea [None]
  - Muscle spasms [None]
  - Muscle spasms [None]
  - Pain in extremity [None]
  - Contusion [None]
  - Post procedural complication [None]
